FAERS Safety Report 7018566-4 (Version None)
Quarter: 2010Q3

REPORT INFORMATION
  Report Type: 
  Country: None (occurrence: None)
  Receive Date: 20100922
  Receipt Date: 20100910
  Transmission Date: 20110219
  Serious: Yes (Hospitalization)
  Sender: FDA-Public Use
  Company Number: 2010-2132

PATIENT
  Age: 41 Year
  Sex: Male

DRUGS (3)
  1. SOMATULINE AUTOGEL (LANREOTIDE AUTOGEL) (LANREOTIDE) (LANREOTIDE) (LAN [Suspect]
     Indication: ACROMEGALY
     Dosage: 120GM (120 MG)
  2. SOMATULINE AUTOGEL 120MG  (LANORETIDE AUTOGEL) (LOREOTIDE) (LANREOTIDE [Suspect]
     Indication: ACROMEGALY
  3. SOMATULINE DEPOT [Suspect]
     Indication: ACROMEGALY

REACTIONS (2)
  - DISEASE PROGRESSION [None]
  - PITUITARY TUMOUR [None]
